FAERS Safety Report 18899675 (Version 2)
Quarter: 2021Q1

REPORT INFORMATION
  Report Type: Report from Study
  Country: GB (occurrence: GB)
  Receive Date: 20210216
  Receipt Date: 20210223
  Transmission Date: 20210420
  Serious: Yes (Death)
  Sender: FDA-Public Use
  Company Number: GB-ROCHE-2766373

PATIENT
  Age: 55 Year
  Sex: Male
  Weight: 65 kg

DRUGS (2)
  1. ALTEPLASE. [Suspect]
     Active Substance: ALTEPLASE
     Indication: ISCHAEMIC STROKE
     Dosage: W/ A SINGLE WEIGHT ADJUSTED DOSE UP TO A MAXIMUM OF 90 MG) (STRENGTH: 10, 20, 50 MG)
     Route: 042
  2. TENECTEPLASE [Suspect]
     Active Substance: TENECTEPLASE
     Indication: ISCHAEMIC STROKE
     Dosage: W/A SINGLE WEIGHT ADJUSTED BOLUS DOSE UP TO A MAXIMUM OF 25 MG
     Route: 042

REACTIONS (4)
  - Brain stem infarction [Fatal]
  - Vertebral artery dissection [Fatal]
  - Pneumonia aspiration [Fatal]
  - General physical health deterioration [Fatal]

NARRATIVE: CASE EVENT DATE: 20210131
